FAERS Safety Report 6451492-8 (Version None)
Quarter: 2009Q4

REPORT INFORMATION
  Report Type: 
  Country: None (occurrence: None)
  Receive Date: 20091123
  Receipt Date: 20090619
  Transmission Date: 20100525
  Serious: Yes (Other)
  Sender: FDA-Public Use
  Company Number: US-BRISTOL-MYERS SQUIBB COMPANY-14675367

PATIENT
  Age: 74 Year
  Sex: Female

DRUGS (1)
  1. AVALIDE [Suspect]
     Indication: BLOOD PRESSURE
     Dosage: 1 DF= 150MG/12.5MG;

REACTIONS (4)
  - BLOOD POTASSIUM DECREASED [None]
  - BLOOD PRESSURE DECREASED [None]
  - HAEMOGLOBIN DECREASED [None]
  - SWELLING [None]
